FAERS Safety Report 13399454 (Version 3)
Quarter: 2017Q2

REPORT INFORMATION
  Report Type: Spontaneous
  Country: US (occurrence: US)
  Receive Date: 20170404
  Receipt Date: 20170525
  Transmission Date: 20170830
  Serious: Yes (Hospitalization)
  Sender: FDA-Public Use
  Company Number: US-ALEXION PHARMACEUTICALS INC.-A201703106

PATIENT
  Sex: Male

DRUGS (1)
  1. SOLIRIS [Suspect]
     Active Substance: ECULIZUMAB
     Indication: HAEMOLYTIC URAEMIC SYNDROME
     Dosage: 1200 MG, UNK
     Route: 042
     Dates: start: 20150512, end: 20150512

REACTIONS (12)
  - Haemoglobin abnormal [Unknown]
  - Pyrexia [Unknown]
  - Blood creatinine increased [Unknown]
  - Blood urea increased [Unknown]
  - Chromaturia [Unknown]
  - Haematocrit abnormal [Unknown]
  - Cough [Unknown]
  - Fatigue [Unknown]
  - Viral upper respiratory tract infection [Unknown]
  - Blood lactate dehydrogenase abnormal [Unknown]
  - Platelet count abnormal [Unknown]
  - Somnolence [Unknown]
